FAERS Safety Report 5749078-3 (Version None)
Quarter: 2008Q2

REPORT INFORMATION
  Report Type: 
  Country: None (occurrence: None)
  Receive Date: 20080522
  Receipt Date: 20080507
  Transmission Date: 20081010
  Serious: Yes (Hospitalization)
  Sender: FDA-Public Use
  Company Number: DSA_31837_2008

PATIENT
  Sex: Male

DRUGS (18)
  1. LORAZEPAM [Suspect]
     Indication: DRUG USE FOR UNKNOWN INDICATION
     Dosage: 1 MG QD ORAL, 2 MG QD ORAL, 0.5 MG QD ORAL
     Route: 048
     Dates: start: 20070814, end: 20070814
  2. LORAZEPAM [Suspect]
     Indication: DRUG USE FOR UNKNOWN INDICATION
     Dosage: 1 MG QD ORAL, 2 MG QD ORAL, 0.5 MG QD ORAL
     Route: 048
     Dates: start: 20070815, end: 20070815
  3. LORAZEPAM [Suspect]
     Indication: DRUG USE FOR UNKNOWN INDICATION
     Dosage: 1 MG QD ORAL, 2 MG QD ORAL, 0.5 MG QD ORAL
     Route: 048
     Dates: start: 20070816, end: 20070822
  4. LORAZEPAM [Suspect]
     Indication: DRUG USE FOR UNKNOWN INDICATION
     Dosage: 1 MG QD ORAL, 2 MG QD ORAL, 0.5 MG QD ORAL
     Route: 048
     Dates: start: 20070823
  5. CONVULEX /00228501/ (CONVULEX VALPROATE SODIUM) 100 MG, 50 MG (NOT SPE [Suspect]
     Indication: DRUG USE FOR UNKNOWN INDICATION
     Dosage: 100 MG QD ORAL, 50 MG QD ORAL, 100 MG INCREASING TO 500 MG DAILY ORAL
     Route: 048
     Dates: start: 20070815, end: 20070815
  6. CONVULEX /00228501/ (CONVULEX VALPROATE SODIUM) 100 MG, 50 MG (NOT SPE [Suspect]
     Indication: DRUG USE FOR UNKNOWN INDICATION
     Dosage: 100 MG QD ORAL, 50 MG QD ORAL, 100 MG INCREASING TO 500 MG DAILY ORAL
     Route: 048
     Dates: start: 20070816, end: 20070816
  7. CONVULEX /00228501/ (CONVULEX VALPROATE SODIUM) 100 MG, 50 MG (NOT SPE [Suspect]
     Indication: DRUG USE FOR UNKNOWN INDICATION
     Dosage: 100 MG QD ORAL, 50 MG QD ORAL, 100 MG INCREASING TO 500 MG DAILY ORAL
     Route: 048
     Dates: start: 20070817
  8. DIPIPERON (DIPIPERON - PIPAMPERONE) [Suspect]
     Indication: DRUG USE FOR UNKNOWN INDICATION
     Dosage: 10 MG QD  ORAL
     Route: 048
     Dates: start: 20070815, end: 20070815
  9. DIPIPERON (DIPIPERON - PIPAMPERONE) [Suspect]
     Indication: DRUG USE FOR UNKNOWN INDICATION
     Dosage: 10 MG QD  ORAL
     Route: 048
     Dates: start: 20070817, end: 20070817
  10. LEXOTANIL (LEXOTANIL - BROMAZEPAM) [Suspect]
     Indication: DRUG USE FOR UNKNOWN INDICATION
     Dosage: 4.5 - 6 MG PER DAY
     Dates: end: 20070814
  11. REMERON [Suspect]
     Indication: DRUG USE FOR UNKNOWN INDICATION
     Dosage: 15 MG QD ORAL; 30 MG QD ORAL; 45-60 MG PER DAY ORAL
     Route: 048
     Dates: start: 20070815, end: 20070815
  12. REMERON [Suspect]
     Indication: DRUG USE FOR UNKNOWN INDICATION
     Dosage: 15 MG QD ORAL; 30 MG QD ORAL; 45-60 MG PER DAY ORAL
     Route: 048
     Dates: start: 20070817, end: 20071021
  13. REMERON [Suspect]
     Indication: DRUG USE FOR UNKNOWN INDICATION
     Dosage: 15 MG QD ORAL; 30 MG QD ORAL; 45-60 MG PER DAY ORAL
     Route: 048
     Dates: start: 20071022
  14. MARCUMAR [Concomitant]
  15. PRAVASTATIN [Concomitant]
  16. PRAVASTATIN [Concomitant]
  17. HYDROCHLOROTHIAZIDE W /LOSARTAN [Concomitant]
  18. BELOC ZOK [Concomitant]

REACTIONS (10)
  - ACUTE PRERENAL FAILURE [None]
  - ALTERED STATE OF CONSCIOUSNESS [None]
  - BRADYCARDIA [None]
  - DRUG INTERACTION [None]
  - FATIGUE [None]
  - HYPOTENSION [None]
  - OXYGEN SATURATION DECREASED [None]
  - SOMNOLENCE [None]
  - URINARY TRACT INFECTION [None]
  - VOMITING [None]
